FAERS Safety Report 22888787 (Version 5)
Quarter: 2024Q1

REPORT INFORMATION
  Report Type: Spontaneous
  Country: US (occurrence: US)
  Receive Date: 20230831
  Receipt Date: 20240125
  Transmission Date: 20240410
  Serious: Yes (Hospitalization, Other)
  Sender: FDA-Public Use
  Company Number: US-BIOVITRUM-2023-US-014312

PATIENT
  Age: 17 Month
  Sex: Male
  Weight: 11.36 kg

DRUGS (2)
  1. SYNAGIS [Suspect]
     Active Substance: PALIVIZUMAB
     Indication: Antiviral prophylaxis
     Dosage: 15MG/KG EVERY 28 DAYS?100MG/1ML
     Route: 030
  2. SYNAGIS [Suspect]
     Active Substance: PALIVIZUMAB
     Indication: Bronchopulmonary dysplasia
     Dosage: 15MG/KG EVERY 28 DAYS?50MG/0.5ML
     Route: 030

REACTIONS (7)
  - Pyrexia [Unknown]
  - Cough [Unknown]
  - Vomiting [Unknown]
  - Drug effect less than expected [Unknown]
  - Sleep disorder [Unknown]
  - Illness [Unknown]
  - Croup infectious [Unknown]
